FAERS Safety Report 15318974 (Version 1)
Quarter: 2018Q3

REPORT INFORMATION
  Report Type: Spontaneous
  Country: US (occurrence: US)
  Receive Date: 20180820
  Receipt Date: 20180820
  Transmission Date: 20181010
  Serious: Yes (Hospitalization)
  Sender: FDA-Public Use
  Company Number: None

PATIENT
  Age: 33 Year
  Sex: Male
  Weight: 108.2 kg

DRUGS (1)
  1. TEMOZOLOMIDE. [Suspect]
     Active Substance: TEMOZOLOMIDE
     Indication: GLIOBLASTOMA MULTIFORME
     Route: 048
     Dates: start: 20180320, end: 20180424

REACTIONS (6)
  - Jaundice [None]
  - Hepatic failure [None]
  - Hyperbilirubinaemia [None]
  - Transaminases increased [None]
  - Cholestasis [None]
  - Liver injury [None]

NARRATIVE: CASE EVENT DATE: 20180425
